FAERS Safety Report 7536301-8 (Version None)
Quarter: 2011Q2

REPORT INFORMATION
  Report Type: 
  Country: None (occurrence: None)
  Receive Date: 20110608
  Receipt Date: 20110608
  Transmission Date: 20111010
  Serious: Yes (Other)
  Sender: FDA-Public Use
  Company Number: None

PATIENT
  Sex: Male

DRUGS (3)
  1. INVEGA SUSTENNA [Suspect]
  2. INVEGA SUSTENNA [Suspect]
     Indication: SCHIZOPHRENIA
     Dosage: 156 MG TITRATION IM
     Route: 030
     Dates: start: 20110531, end: 20110531
  3. INVEGA SUSTENNA [Suspect]
     Indication: SCHIZOPHRENIA
     Dosage: 156 MG TITRATION IM
     Route: 030
     Dates: start: 20110523, end: 20110523

REACTIONS (6)
  - TENDERNESS [None]
  - PAIN [None]
  - SWELLING [None]
  - INJECTION SITE REACTION [None]
  - MASS [None]
  - MUSCLE TIGHTNESS [None]
